FAERS Safety Report 18687756 (Version 1)
Quarter: 2020Q4

REPORT INFORMATION
  Report Type: Spontaneous
  Country: US (occurrence: US)
  Receive Date: 20201229
  Receipt Date: 20201229
  Transmission Date: 20210114
  Serious: Yes (Hospitalization)
  Sender: FDA-Public Use
  Company Number: None

PATIENT
  Age: 65 Year
  Sex: Female

DRUGS (8)
  1. A-HYDROCORT [Concomitant]
     Active Substance: HYDROCORTISONE SODIUM SUCCINATE
  2. GENOTROPIN [Suspect]
     Active Substance: SOMATROPIN
     Indication: POSTOPERATIVE HYPOPITUITARISM
     Route: 058
     Dates: start: 20160721
  3. ONDASETRON [Concomitant]
     Active Substance: ONDANSETRON
  4. ARMOUR THYROID [Concomitant]
     Active Substance: THYROID, PORCINE
  5. FLOVENT [Concomitant]
     Active Substance: FLUTICASONE PROPIONATE
  6. METHYPROED [Concomitant]
  7. AZITHROMYCIN ANHYDROUS. [Concomitant]
     Active Substance: AZITHROMYCIN ANHYDROUS
  8. NP[ THYROID [Concomitant]

REACTIONS (2)
  - Therapy interrupted [None]
  - COVID-19 [None]

NARRATIVE: CASE EVENT DATE: 20201217
